FAERS Safety Report 25361433 (Version 2)
Quarter: 2025Q2

REPORT INFORMATION
  Report Type: Report from Study
  Country: MX (occurrence: MX)
  Receive Date: 20250527
  Receipt Date: 20250604
  Transmission Date: 20250717
  Serious: No
  Sender: ALEXION PHARMACEUTICALS
  Company Number: MX-AstraZeneca-CH-00876272A

PATIENT
  Age: 87 Year

DRUGS (14)
  1. BUDESONIDE\FORMOTEROL [Suspect]
     Active Substance: BUDESONIDE\FORMOTEROL
     Indication: COVID-19
     Dosage: 2 INHALATIONS IN THE MORNING AND 2 AT NIGHT
  2. BUDESONIDE\FORMOTEROL [Suspect]
     Active Substance: BUDESONIDE\FORMOTEROL
     Indication: Lung disorder
  3. ESOMEPRAZOLE [Suspect]
     Active Substance: ESOMEPRAZOLE
     Indication: Prophylaxis
     Dosage: 40 MILLIGRAM, QD
  4. CLONAZEPAM [Concomitant]
     Active Substance: CLONAZEPAM
  5. LEVOFLOXACIN [Concomitant]
     Active Substance: LEVOFLOXACIN
     Indication: COVID-19
     Dosage: 500 MILLIGRAM, QD
  6. COMBIVENT [Concomitant]
     Active Substance: ALBUTEROL SULFATE\IPRATROPIUM BROMIDE
     Indication: COVID-19
     Dosage: 2 DOSAGE FORM, Q12H
  7. ACETAMINOPHEN\AMANTADINE\CHLORPHENIRAMINE [Concomitant]
     Active Substance: ACETAMINOPHEN\AMANTADINE\CHLORPHENIRAMINE
     Indication: Nasal congestion
     Dosage: 50 MG/ 3 MG/ 300 MG, QD
  8. ACETAMINOPHEN\AMANTADINE\CHLORPHENIRAMINE [Concomitant]
     Active Substance: ACETAMINOPHEN\AMANTADINE\CHLORPHENIRAMINE
     Indication: COVID-19
  9. CEFIXIME [Concomitant]
     Active Substance: CEFIXIME
     Indication: Dengue fever
     Dosage: 400 MILLIGRAM, QD
  10. Stugeron forte [Concomitant]
     Indication: Central nervous system stimulation
     Dosage: 75 MILLIGRAM, QD
  11. Serc [Concomitant]
     Indication: Vertigo
     Dosage: 24 MILLIGRAM, QD
  12. LINAGLIPTIN [Concomitant]
     Active Substance: LINAGLIPTIN
     Indication: Type 2 diabetes mellitus
     Dosage: 1 DOSAGE FORM, QD
  13. AKINETON [Concomitant]
     Active Substance: BIPERIDEN HYDROCHLORIDE
     Indication: Tremor
     Dosage: 2 MILLIGRAM, QD
  14. Cervilan [Concomitant]
     Indication: Vertigo
     Route: 065

REACTIONS (3)
  - Off label use [Unknown]
  - Dengue fever [Recovered/Resolved]
  - Vertigo [Not Recovered/Not Resolved]
